FAERS Safety Report 18575024 (Version 2)
Quarter: 2020Q4

REPORT INFORMATION
  Report Type: Spontaneous
  Country: BR (occurrence: BR)
  Receive Date: 20201203
  Receipt Date: 20201209
  Transmission Date: 20210114
  Serious: No
  Sender: FDA-Public Use
  Company Number: BR-PFIZER INC-2020022818

PATIENT
  Age: 32 Year
  Sex: Female
  Weight: 54 kg

DRUGS (3)
  1. ZITROMAX [Suspect]
     Active Substance: AZITHROMYCIN
     Indication: ACNE
     Dosage: 2 OR 3 TABLETS DAILY
     Route: 048
     Dates: start: 201809, end: 201809
  2. PLASIL [METOCLOPRAMIDE] [Concomitant]
     Dosage: UNK
  3. VONAU [Concomitant]
     Active Substance: ONDANSETRON HYDROCHLORIDE
     Dosage: UNK

REACTIONS (2)
  - Off label use [Unknown]
  - Maternal exposure during pregnancy [Unknown]

NARRATIVE: CASE EVENT DATE: 201809
